FAERS Safety Report 4490869-7 (Version None)
Quarter: 2004Q4

REPORT INFORMATION
  Report Type: 
  Country: None (occurrence: None)
  Receive Date: 20041027
  Receipt Date: 20421014
  Transmission Date: 20050328
  Serious: Yes (Other)
  Sender: FDA-Public Use
  Company Number: 2004079304

PATIENT
  Age: 81 Year
  Sex: Female
  Weight: 59.5 kg

DRUGS (5)
  1. DOXAZOSIN MESYLATE [Suspect]
     Indication: HYPERTENSION
     Dosage: 2 MG (2 MG, 1 IN 1 D), ORAL
     Route: 048
     Dates: start: 20040308, end: 20040827
  2. ATENOLOL [Concomitant]
  3. LOSARTAN (LOSARTAN) [Concomitant]
  4. BUMETANIDE [Concomitant]
  5. ASPIRIN [Concomitant]

REACTIONS (5)
  - CAROTID ARTERY ATHEROMA [None]
  - DISEASE RECURRENCE [None]
  - LACUNAR INFARCTION [None]
  - PARAESTHESIA [None]
  - TRANSIENT ISCHAEMIC ATTACK [None]
